FAERS Safety Report 25838875 (Version 1)
Quarter: 2025Q3

REPORT INFORMATION
  Report Type: Spontaneous
  Country: GB (occurrence: None)
  Receive Date: 20250924
  Receipt Date: 20250924
  Transmission Date: 20251021
  Serious: Yes (Other)
  Sender: Alvotech
  Company Number: None

PATIENT
  Age: 43 Year
  Sex: Female
  Weight: 59 kg

DRUGS (1)
  1. USTEKINUMAB [Suspect]
     Active Substance: USTEKINUMAB
     Indication: Product used for unknown indication
     Dates: start: 20250814

REACTIONS (9)
  - Palpitations [Unknown]
  - Feeling hot [Unknown]
  - Heart rate increased [Unknown]
  - Hyperhidrosis [Unknown]
  - Defaecation urgency [Unknown]
  - Night sweats [Unknown]
  - Abdominal pain [Unknown]
  - Diarrhoea [Unknown]
  - Rectal haemorrhage [Unknown]

NARRATIVE: CASE EVENT DATE: 20250814
